FAERS Safety Report 8009716-1 (Version None)
Quarter: 2011Q4

REPORT INFORMATION
  Report Type: 
  Country: None (occurrence: None)
  Receive Date: 20111228
  Receipt Date: 20111220
  Transmission Date: 20120403
  Serious: No
  Sender: FDA-Public Use
  Company Number: US-BIOGENIDEC-2011BI048101

PATIENT
  Age: 56 Year
  Sex: Female

DRUGS (5)
  1. BACLOFEN [Concomitant]
     Indication: MUSCLE SPASMS
     Dates: start: 19950101
  2. GABAPENTIN [Concomitant]
     Indication: BURNING SENSATION
     Dates: start: 20111001
  3. TYSABRI [Suspect]
     Indication: MULTIPLE SCLEROSIS
     Route: 042
     Dates: start: 20111213
  4. GABAPENTIN [Concomitant]
     Indication: SENSORY DISTURBANCE
     Dates: start: 20111001
  5. AMANTADINE HCL [Concomitant]
     Indication: FATIGUE
     Dates: start: 19970101

REACTIONS (6)
  - SENSORY DISTURBANCE [None]
  - URINARY RETENTION [None]
  - MUSCLE SPASMS [None]
  - POLLAKIURIA [None]
  - FATIGUE [None]
  - MICTURITION URGENCY [None]
